FAERS Safety Report 7747059-1 (Version None)
Quarter: 2011Q3

REPORT INFORMATION
  Report Type: 
  Country: None (occurrence: None)
  Receive Date: 20110913
  Receipt Date: 20110908
  Transmission Date: 20111222
  Serious: Yes (Death)
  Sender: FDA-Public Use
  Company Number: PHHY2011FR55991

PATIENT
  Sex: Male
  Weight: 100 kg

DRUGS (2)
  1. ISOPTIN [Concomitant]
     Indication: HYPERTENSION
     Dosage: 240 MG, QD
     Route: 048
     Dates: start: 20110509
  2. RASILEZ [Suspect]
     Indication: HYPERTENSION
     Dosage: 300 MG, QD
     Route: 048
     Dates: start: 20110428

REACTIONS (6)
  - ALANINE AMINOTRANSFERASE INCREASED [None]
  - GAMMA-GLUTAMYLTRANSFERASE INCREASED [None]
  - CIRCULATORY COLLAPSE [None]
  - HEADACHE [None]
  - CARDIAC ARREST [None]
  - ASPARTATE AMINOTRANSFERASE INCREASED [None]
